FAERS Safety Report 16149054 (Version 1)
Quarter: 2019Q2

REPORT INFORMATION
  Report Type: Report from Study
  Country: JP (occurrence: JP)
  Receive Date: 20190402
  Receipt Date: 20190402
  Transmission Date: 20190711
  Serious: Yes (Hospitalization)
  Sender: FDA-Public Use
  Company Number: JP-ASTELLAS-2018JP011254

PATIENT
  Age: 76 Year
  Sex: Male

DRUGS (25)
  1. OMNIPAQUE [Concomitant]
     Active Substance: IOHEXOL
     Indication: COMPUTERISED TOMOGRAM
     Dosage: UNK UNK, UNKNOWN FREQ.
     Route: 042
     Dates: start: 20170530, end: 20170530
  2. ENZALUTAMIDE [Suspect]
     Active Substance: ENZALUTAMIDE
     Indication: HORMONE-REFRACTORY PROSTATE CANCER
     Route: 048
     Dates: start: 20171227
  3. LEUPRORELIN ACETATE [Concomitant]
     Active Substance: LEUPROLIDE ACETATE
     Indication: HORMONE-REFRACTORY PROSTATE CANCER
     Dosage: 11.25 MG, EVERY 3 MONTHS
     Route: 058
  4. TECHNE MDP [Concomitant]
     Dosage: UNK UNK, UNKNOWN FREQ.
     Route: 042
     Dates: start: 20170831
  5. AMBROXOL HYDROCHLORIDE [Concomitant]
     Active Substance: AMBROXOL HYDROCHLORIDE
     Indication: VOCAL CORD INFLAMMATION
     Dosage: UNK UNK, UNKNOWN FREQ.
     Route: 048
     Dates: start: 20181022, end: 20181102
  6. RINDERON V [Concomitant]
     Active Substance: BETAMETHASONE VALERATE
     Indication: PARONYCHIA
     Dosage: PROPER QUANTITY, ONCE DAILY
     Route: 062
     Dates: start: 20180926
  7. URSODEOXYCHOLIC ACID [Concomitant]
     Active Substance: URSODIOL
     Indication: HEPATIC ENZYME INCREASED
     Dosage: UNK UNK, UNKNOWN FREQ.
     Route: 048
     Dates: end: 20180904
  8. EBASTINE [Concomitant]
     Active Substance: EBASTINE
     Indication: BRONCHITIS
     Dosage: UNK UNK, UNKNOWN FREQ.
     Route: 048
     Dates: start: 20180511, end: 20180518
  9. HYALURONATE NA [Concomitant]
     Active Substance: HYALURONATE SODIUM
     Indication: DRY EYE
     Dosage: PROPER QUANTITY, ONCE DAILY
     Route: 061
  10. ZOLPIDEM                           /00914902/ [Concomitant]
     Active Substance: ZOLPIDEM\ZOLPIDEM TARTRATE
     Indication: INSOMNIA
     Route: 048
  11. BILASTINE [Concomitant]
     Active Substance: BILASTINE
     Indication: UPPER RESPIRATORY TRACT INFECTION
     Dosage: UNK UNK, UNKNOWN FREQ.
     Route: 048
     Dates: start: 20180611, end: 20180615
  12. BAKUMONDOTO [Concomitant]
     Active Substance: HERBALS
     Indication: VOCAL CORD INFLAMMATION
     Dosage: UNK UNK, UNKNOWN FREQ.
     Route: 048
     Dates: start: 20181027, end: 20181203
  13. JIINKOKATO [Concomitant]
     Active Substance: HERBALS
     Indication: VOCAL CORD INFLAMMATION
     Dosage: UNK UNK, UNKNOWN FREQ.
     Route: 048
     Dates: start: 20181204, end: 20190120
  14. CRESTOR [Concomitant]
     Active Substance: ROSUVASTATIN CALCIUM
     Indication: HYPERCHOLESTEROLAEMIA
     Route: 048
  15. ZETIA [Concomitant]
     Active Substance: EZETIMIBE
     Indication: HYPERCHOLESTEROLAEMIA
     Route: 048
  16. OMNIPAQUE [Concomitant]
     Active Substance: IOHEXOL
     Dosage: UNK UNK, UNKNOWN FREQ.
     Route: 042
     Dates: start: 20170831
  17. TIARAMIDE HYDROCHLORIDE [Concomitant]
     Active Substance: TIARAMIDE HYDROCHLORIDE
     Indication: UPPER RESPIRATORY TRACT INFECTION
     Dosage: UNK UNK, UNKNOWN FREQ.
     Route: 048
     Dates: start: 20180611, end: 20180615
  18. TECHNE MDP [Concomitant]
     Indication: RADIOISOTOPE SCAN
     Dosage: UNK UNK, UNKNOWN FREQ.
     Route: 042
     Dates: start: 20170530, end: 20170530
  19. AMBROXOL HYDROCHLORIDE [Concomitant]
     Active Substance: AMBROXOL HYDROCHLORIDE
     Indication: BRONCHITIS
     Dosage: UNK UNK, UNKNOWN FREQ.
     Route: 048
     Dates: start: 20180511, end: 20180518
  20. CLARITHROMYCIN. [Concomitant]
     Active Substance: CLARITHROMYCIN
     Indication: UPPER RESPIRATORY TRACT INFECTION
     Dosage: UNK UNK, UNKNOWN FREQ.
     Route: 048
     Dates: start: 20180611, end: 20180615
  21. VONOPRAZAN [Concomitant]
     Active Substance: VONOPRAZAN
     Indication: GASTRIC ULCER
     Dosage: UNK UNK, UNKNOWN FREQ.
     Route: 048
     Dates: start: 20181220
  22. BAYASPIRIN [Concomitant]
     Active Substance: ASPIRIN
     Indication: PROPHYLAXIS
     Route: 048
  23. FAMOTIDINE. [Concomitant]
     Active Substance: FAMOTIDINE
     Indication: GASTRIC ULCER
     Dosage: UNK UNK, UNKNOWN FREQ.
     Route: 048
  24. CLOPERASTINE HYDROCHLORIDE [Concomitant]
     Active Substance: CLOPERASTINE HYDROCHLORIDE
     Indication: UPPER RESPIRATORY TRACT INFECTION
     Dosage: UNK UNK, UNKNOWN FREQ.
     Route: 048
     Dates: start: 20180611, end: 20180615
  25. HIRUDOID                           /00723701/ [Concomitant]
     Active Substance: PENTOSAN POLYSULFATE SODIUM
     Indication: PARONYCHIA
     Dosage: PROPER QUANTITY, ONCE DAILY
     Route: 062
     Dates: start: 20180926

REACTIONS (9)
  - Fall [Recovered/Resolved]
  - Gastric ulcer [Not Recovered/Not Resolved]
  - Benign duodenal neoplasm [Not Recovered/Not Resolved]
  - Bronchitis [Recovered/Resolved]
  - Paronychia [Recovered/Resolved]
  - Vocal cord inflammation [Recovered/Resolved]
  - Iron deficiency anaemia [Recovered/Resolved]
  - Paronychia [Not Recovered/Not Resolved]
  - Upper respiratory tract infection [Recovered/Resolved]

NARRATIVE: CASE EVENT DATE: 20180505
